FAERS Safety Report 6284230-2 (Version None)
Quarter: 2009Q3

REPORT INFORMATION
  Report Type: 
  Country: None (occurrence: None)
  Receive Date: 20090727
  Receipt Date: 20090721
  Transmission Date: 20100115
  Serious: Yes (Hospitalization)
  Sender: FDA-Public Use
  Company Number: FR-JNJFOC-20090706875

PATIENT
  Age: 78 Year
  Sex: Female

DRUGS (8)
  1. TAVANIC [Suspect]
     Indication: URINARY TRACT INFECTION
     Route: 048
  2. HYDROCORTISONE [Concomitant]
     Indication: ADDISON'S DISEASE
     Route: 048
  3. OMEPRAZOLE [Concomitant]
     Dosage: 1 U
     Route: 048
  4. LASIX [Concomitant]
     Route: 048
  5. ALDACTONE [Concomitant]
     Route: 048
  6. DOLIPRANE [Concomitant]
     Route: 048
  7. STILNOX [Concomitant]
     Route: 048
  8. AUGMENTIN [Concomitant]
     Indication: URINARY TRACT INFECTION
     Route: 065

REACTIONS (3)
  - INTENTIONAL DRUG MISUSE [None]
  - MYOCLONUS [None]
  - RENAL FAILURE [None]
